FAERS Safety Report 19915705 (Version 1)
Quarter: 2021Q4

REPORT INFORMATION
  Report Type: Spontaneous
  Country: US (occurrence: US)
  Receive Date: 20211005
  Receipt Date: 20211005
  Transmission Date: 20220303
  Serious: No
  Sender: FDA-Public Use
  Company Number: US-BAUSCH-BL-2021-033061

PATIENT
  Age: 17 Year
  Sex: Female

DRUGS (1)
  1. ALAWAY [Suspect]
     Active Substance: KETOTIFEN FUMARATE
     Indication: Hypersensitivity
     Route: 047

REACTIONS (2)
  - Instillation site pain [Unknown]
  - Accidental overdose [Unknown]
